FAERS Safety Report 17823625 (Version 1)
Quarter: 2020Q2

REPORT INFORMATION
  Report Type: Spontaneous
  Country: US (occurrence: US)
  Receive Date: 20200525
  Receipt Date: 20200525
  Transmission Date: 20200714
  Serious: Yes (Other)
  Sender: FDA-Public Use
  Company Number: None

PATIENT
  Age: 72 Year
  Sex: Female
  Weight: 74.25 kg

DRUGS (21)
  1. DESIPRAMINE [Concomitant]
     Active Substance: DESIPRAMINE
  2. KLONOPIN [Concomitant]
     Active Substance: CLONAZEPAM
  3. PROBIOTIC [Concomitant]
     Active Substance: PROBIOTICS NOS
  4. LD ASA [Concomitant]
  5. BEET ROOT POWDER [Concomitant]
  6. LYRICA [Concomitant]
     Active Substance: PREGABALIN
  7. ZONEGRAN [Concomitant]
     Active Substance: ZONISAMIDE
  8. FOSAMAX [Concomitant]
     Active Substance: ALENDRONATE SODIUM
  9. EZETIMIBE 10 MG TABLET COMMON BRAND(S): ZETIA [Suspect]
     Active Substance: EZETIMIBE
     Indication: LIPIDS INCREASED
     Route: 048
     Dates: start: 20200328, end: 20200521
  10. MULTIVIT [Concomitant]
     Active Substance: VITAMINS
  11. METFORMIN [Concomitant]
     Active Substance: METFORMIN HYDROCHLORIDE
  12. GLIMEPERIDE [Concomitant]
     Active Substance: GLIMEPIRIDE
  13. VITAMIN D3 [Concomitant]
     Active Substance: CHOLECALCIFEROL
  14. MCT OIL [Concomitant]
  15. VITC [Concomitant]
  16. LANTUS [Concomitant]
     Active Substance: INSULIN GLARGINE
  17. VITAMIN B12 [Concomitant]
     Active Substance: CYANOCOBALAMIN
  18. COLLAGEN [Concomitant]
     Active Substance: COLLAGEN
  19. CALCIUM [Concomitant]
     Active Substance: CALCIUM
  20. SELENIUM [Concomitant]
     Active Substance: SELENIUM
  21. ZINC. [Concomitant]
     Active Substance: ZINC

REACTIONS (4)
  - Dyspepsia [None]
  - Chronic kidney disease [None]
  - Abdominal distension [None]
  - Regurgitation [None]

NARRATIVE: CASE EVENT DATE: 20200514
